FAERS Safety Report 10332596 (Version 8)
Quarter: 2022Q2

REPORT INFORMATION
  Report Type: Spontaneous
  Country: JP (occurrence: JP)
  Receive Date: 20140722
  Receipt Date: 20220520
  Transmission Date: 20220721
  Serious: Yes (Life-Threatening, Hospitalization, Other)
  Sender: FDA-Public Use
  Company Number: None

PATIENT

DRUGS (6)
  1. VALACYCLOVIR HYDROCHLORIDE [Suspect]
     Active Substance: VALACYCLOVIR HYDROCHLORIDE
     Indication: Herpes zoster
     Dosage: 1000 MG, TID
     Route: 048
     Dates: start: 20140522, end: 20140531
  2. VALACYCLOVIR HYDROCHLORIDE [Suspect]
     Active Substance: VALACYCLOVIR HYDROCHLORIDE
     Dosage: 3000 MG/DAY
     Route: 048
  3. ZOVIRAX [Suspect]
     Active Substance: ACYCLOVIR
     Indication: Herpes zoster
     Dosage: 250 MG/DAY
     Route: 041
  4. ACYCLOVIR [Suspect]
     Active Substance: ACYCLOVIR
     Indication: Herpes zoster
     Dosage: 250 MG, QD
     Route: 041
     Dates: start: 20140522, end: 20140529
  5. LYRICA [Suspect]
     Active Substance: PREGABALIN
     Indication: Pain
     Dosage: 75 MG, QD
     Route: 048
     Dates: start: 20140524, end: 20140531
  6. LOXOPROFEN SODIUM [Concomitant]
     Active Substance: LOXOPROFEN SODIUM
     Indication: Pain
     Dosage: 60 MG, TID
     Dates: start: 20140529, end: 20140531

REACTIONS (20)
  - Tubulointerstitial nephritis [Recovering/Resolving]
  - Altered state of consciousness [Recovered/Resolved]
  - Toxic encephalopathy [Unknown]
  - Acute kidney injury [Unknown]
  - Seizure [Recovering/Resolving]
  - Diabetes mellitus [Unknown]
  - Renal impairment [Unknown]
  - Nausea [Unknown]
  - Anuria [Unknown]
  - Nervous system disorder [Recovered/Resolved]
  - Dysarthria [Recovered/Resolved]
  - Urine output decreased [Unknown]
  - Blood glucose increased [Unknown]
  - Pain [Unknown]
  - Malaise [Unknown]
  - Fluid intake reduced [Unknown]
  - Hypophagia [Unknown]
  - Skin ulcer [Unknown]
  - Dehydration [Unknown]
  - Overdose [Unknown]

NARRATIVE: CASE EVENT DATE: 20140601
